FAERS Safety Report 24061900 (Version 1)
Quarter: 2024Q3

REPORT INFORMATION
  Report Type: Spontaneous
  Country: US (occurrence: US)
  Receive Date: 20240708
  Receipt Date: 20240708
  Transmission Date: 20241016
  Serious: No
  Sender: PFIZER
  Company Number: US-PFIZER INC-202400207983

PATIENT
  Age: 77 Year
  Sex: Female

DRUGS (1)
  1. VELSIPITY [Suspect]
     Active Substance: ETRASIMOD ARGININE
     Dosage: UNK

REACTIONS (5)
  - Proctitis [Unknown]
  - Diarrhoea [Unknown]
  - Micturition urgency [Unknown]
  - Incontinence [Unknown]
  - Abdominal pain [Unknown]
